FAERS Safety Report 15584278 (Version 1)
Quarter: 2018Q4

REPORT INFORMATION
  Report Type: Spontaneous
  Country: US (occurrence: US)
  Receive Date: 20181031
  Receipt Date: 20181031
  Transmission Date: 20190205
  Serious: No
  Sender: FDA-Public Use
  Company Number: None

PATIENT
  Age: 43 Year
  Sex: Female

DRUGS (1)
  1. QVAR REDIHALER [Suspect]
     Active Substance: BECLOMETHASONE DIPROPIONATE
     Dosage: 2 PUFFS BID PO
     Route: 055
     Dates: start: 20181027, end: 20181030

REACTIONS (6)
  - Chemical burn [None]
  - Speech disorder [None]
  - Pain [None]
  - Candida infection [None]
  - Oropharyngeal pain [None]
  - Vocal cord disorder [None]

NARRATIVE: CASE EVENT DATE: 20181027
